FAERS Safety Report 8184732-8 (Version None)
Quarter: 2012Q1

REPORT INFORMATION
  Report Type: 
  Country: None (occurrence: None)
  Receive Date: 20120305
  Receipt Date: 20120305
  Transmission Date: 20120608
  Serious: Yes (Other)
  Sender: FDA-Public Use
  Company Number: None

PATIENT
  Age: 25 Year
  Sex: Female

DRUGS (1)
  1. ASTROGLIDE [Suspect]
     Indication: VULVOVAGINAL DRYNESS
     Route: 061

REACTIONS (1)
  - URINARY TRACT INFECTION [None]
